FAERS Safety Report 4365388-9 (Version None)
Quarter: 2004Q2

REPORT INFORMATION
  Report Type: 
  Country: None (occurrence: None)
  Receive Date: 20040525
  Receipt Date: 20040510
  Transmission Date: 20050107
  Serious: Yes (Hospitalization)
  Sender: FDA-Public Use
  Company Number: 04P-122-0254736-00

PATIENT
  Age: 32 Year
  Sex: Female

DRUGS (2)
  1. BIAXIN [Suspect]
     Indication: TONSILLITIS
     Dosage: 250 MG, 2 IN 1 D, ORAL
     Route: 048
     Dates: start: 20030121, end: 20030126
  2. EUGYNON [Concomitant]

REACTIONS (9)
  - ABDOMINAL PAIN [None]
  - ARTHRALGIA [None]
  - BACK PAIN [None]
  - FATIGUE [None]
  - GLOMERULONEPHRITIS [None]
  - HEADACHE [None]
  - IMPAIRED WORK ABILITY [None]
  - OEDEMA PERIPHERAL [None]
  - VERTIGO [None]
